FAERS Safety Report 5352718-4 (Version None)
Quarter: 2007Q2

REPORT INFORMATION
  Report Type: 
  Country: None (occurrence: None)
  Receive Date: 20070611
  Receipt Date: 20070530
  Transmission Date: 20071010
  Serious: Yes (Hospitalization)
  Sender: FDA-Public Use
  Company Number: DEWYE751230MAY07

PATIENT
  Sex: Female

DRUGS (4)
  1. VENLAFAXINE HCL [Suspect]
     Dosage: 75 MG DAILY
  2. VENLAFAXINE HCL [Suspect]
     Dosage: 150 MG DAILY
  3. SALMETIN ROTADISK [Concomitant]
  4. SALBUTAMOL [Concomitant]

REACTIONS (14)
  - ANXIETY [None]
  - FATIGUE [None]
  - HYPERHIDROSIS [None]
  - MOUTH HAEMORRHAGE [None]
  - MUSCLE SPASMS [None]
  - MUSCLE TWITCHING [None]
  - NERVOUSNESS [None]
  - NIGHTMARE [None]
  - PANIC REACTION [None]
  - SUFFOCATION FEELING [None]
  - SUICIDAL IDEATION [None]
  - TENSION [None]
  - TINNITUS [None]
  - VAGINAL HAEMORRHAGE [None]
